FAERS Safety Report 4951258-1 (Version None)
Quarter: 2006Q1

REPORT INFORMATION
  Report Type: 
  Country: None (occurrence: None)
  Receive Date: 20060317
  Receipt Date: 20051212
  Transmission Date: 20060701
  Serious: Yes (Hospitalization, Other)
  Sender: FDA-Public Use
  Company Number: 2005BH003580

PATIENT
  Age: 59 Year
  Sex: Female
  Weight: 88.2 kg

DRUGS (13)
  1. VINORELBINE TARTRATE [Suspect]
     Indication: LUNG NEOPLASM MALIGNANT
     Dates: start: 20050704, end: 20050915
  2. IFOSFAMIDE GENERIC (IFOSFAMIDE) [Suspect]
     Indication: LUNG NEOPLASM MALIGNANT
     Dates: start: 20050704, end: 20050915
  3. HYDROMORPH [Concomitant]
  4. OXYBUTYRN [Concomitant]
  5. NORVASC [Concomitant]
  6. ALTACE [Concomitant]
  7. PREDNISONE [Concomitant]
  8. ARAVA [Concomitant]
  9. MOBIC [Concomitant]
  10. PANTALOC [Concomitant]
  11. PREMARIN [Concomitant]
  12. MESNA GENERIC (MESNA) [Suspect]
     Indication: LUNG NEOPLASM MALIGNANT
     Dosage: PO
     Route: 048
     Dates: start: 20050704, end: 20050915
  13. MESNA GENERIC (MESNA) [Suspect]
     Indication: LUNG NEOPLASM MALIGNANT
     Dosage: PO
     Route: 048
     Dates: start: 20050704, end: 20050915

REACTIONS (6)
  - ANAEMIA [None]
  - DYSPHAGIA [None]
  - FEBRILE NEUTROPENIA [None]
  - NAUSEA [None]
  - PAIN IN EXTREMITY [None]
  - VOMITING [None]
